FAERS Safety Report 8544441 (Version 10)
Quarter: 2013Q3

REPORT INFORMATION
  Report Type: Report from Study
  Country: PL (occurrence: PL)
  Receive Date: 20120503
  Receipt Date: 20130719
  Transmission Date: 20140515
  Serious: Yes (Hospitalization, Other)
  Sender: FDA-Public Use
  Company Number: PL-PFIZER INC-2012095749

PATIENT
  Age: 57 Year
  Sex: Male

DRUGS (5)
  1. TEMSIROLIMUS [Suspect]
     Indication: MANTLE CELL LYMPHOMA
     Dosage: 175 MG, WEEKLY, (RECEIVED ONLY TWO INJECTIONS OF THIS DOSAGE)
     Route: 042
     Dates: start: 20111010, end: 20111017
  2. TEMSIROLIMUS [Suspect]
     Dosage: 75 MG,  WEEKLY
     Route: 042
     Dates: start: 20111031, end: 20111115
  3. TEMSIROLIMUS [Suspect]
     Dosage: 50 MG, WEEKLY
     Route: 042
     Dates: start: 20111122, end: 20120320
  4. TEMSIROLIMUS [Suspect]
     Dosage: 25 MG, WEEKLY
     Route: 042
     Dates: start: 20120327, end: 20120410
  5. DESIPRAMINE [Suspect]
     Indication: MANTLE CELL LYMPHOMA
     Dosage: 50 MG, WEEKLY FOR 2 WEEKS
     Route: 048
     Dates: start: 20111003, end: 20111010

REACTIONS (2)
  - Sinusitis [Recovered/Resolved]
  - Agranulocytosis [Recovered/Resolved]
